FAERS Safety Report 16576724 (Version 1)
Quarter: 2019Q3

REPORT INFORMATION
  Report Type: Spontaneous
  Country: DE (occurrence: DE)
  Receive Date: 20190716
  Receipt Date: 20190716
  Transmission Date: 20191004
  Serious: Yes (Life-Threatening, Other)
  Sender: FDA-Public Use
  Company Number: DE-TEVA-2019-DE-1076638

PATIENT
  Age: 57 Year
  Sex: Male
  Weight: 116 kg

DRUGS (1)
  1. PRAMIPEXOL ABZ [Suspect]
     Active Substance: PRAMIPEXOLE DIHYDROCHLORIDE
     Indication: RESTLESS LEGS SYNDROME
     Route: 048
     Dates: start: 201705, end: 201906

REACTIONS (1)
  - Cardiac failure [Recovered/Resolved]
